FAERS Safety Report 5403432-8 (Version None)
Quarter: 2007Q3

REPORT INFORMATION
  Report Type: 
  Country: None (occurrence: None)
  Receive Date: 20070713
  Receipt Date: 20070510
  Transmission Date: 20080115
  Serious: Yes (Hospitalization)
  Sender: FDA-Public Use
  Company Number: US-JNJFOC-20061103352

PATIENT
  Age: 34 Year
  Sex: Female
  Weight: 83.4619 kg

DRUGS (4)
  1. ORTHO EVRA [Suspect]
     Indication: CONTRACEPTION
     Dosage: TRANSDERMAL
     Route: 062
     Dates: start: 20021001, end: 20021007
  2. CLARITIN [Concomitant]
  3. PRILOSEC [Concomitant]
  4. TUMS (CALCIUM CARBONATE) [Concomitant]

REACTIONS (1)
  - PULMONARY EMBOLISM [None]
